FAERS Safety Report 11148442 (Version 1)
Quarter: 2015Q2

REPORT INFORMATION
  Report Type: Spontaneous
  Country: US (occurrence: None)
  Receive Date: 20150528
  Receipt Date: 20150528
  Transmission Date: 20150821
  Serious: No
  Sender: FDA-Public Use
  Company Number: None

PATIENT
  Age: 53 Year
  Sex: Female
  Weight: 88.45 kg

DRUGS (8)
  1. CRANBERRY TABLETS [Concomitant]
  2. PROGESTERONE. [Concomitant]
     Active Substance: PROGESTERONE
  3. ESTRADIOL. [Concomitant]
     Active Substance: ESTRADIOL
  4. MULTIVITAMINS [Concomitant]
     Active Substance: VITAMINS
  5. GLUCOSAMINE-CHONDROITIN SULFATE [Concomitant]
  6. MOVIPREP [Suspect]
     Active Substance: ASCORBIC ACID\POLYETHYLENE GLYCOL 3350\POTASSIUM CHLORIDE\SODIUM ASCORBATE\SODIUM CHLORIDE\SODIUM SULFATE
     Indication: COLONOSCOPY
     Dosage: USE AS ON LABEL
     Route: 048
     Dates: start: 20120813, end: 20120814
  7. VITAMIN D [Concomitant]
     Active Substance: CHOLECALCIFEROL
  8. FISH OIL [Concomitant]
     Active Substance: FISH OIL

REACTIONS (2)
  - Chills [None]
  - Body temperature decreased [None]

NARRATIVE: CASE EVENT DATE: 20120813
